FAERS Safety Report 12837764 (Version 1)
Quarter: 2016Q4

REPORT INFORMATION
  Report Type: Spontaneous
  Country: US (occurrence: US)
  Receive Date: 20161012
  Receipt Date: 20161012
  Transmission Date: 20170207
  Serious: No
  Sender: FDA-Public Use
  Company Number: US-009507513-1609USA013042

PATIENT
  Sex: Male

DRUGS (2)
  1. AMBIEN [Concomitant]
     Active Substance: ZOLPIDEM TARTRATE
  2. BELSOMRA [Suspect]
     Active Substance: SUVOREXANT
     Dosage: 10 MG, UNK
     Route: 048
     Dates: start: 201607, end: 201607

REACTIONS (2)
  - Nightmare [Recovered/Resolved]
  - Off label use [Unknown]

NARRATIVE: CASE EVENT DATE: 201607
